FAERS Safety Report 23190006 (Version 2)
Quarter: 2023Q4

REPORT INFORMATION
  Report Type: Report from Study
  Country: US (occurrence: US)
  Receive Date: 20231116
  Receipt Date: 20231228
  Transmission Date: 20240110
  Serious: Yes (Disabling, Other)
  Sender: FDA-Public Use
  Company Number: US-ALXN-A202211404AA

PATIENT
  Sex: Male

DRUGS (1)
  1. ULTOMIRIS [Suspect]
     Active Substance: RAVULIZUMAB-CWVZ
     Indication: Paroxysmal nocturnal haemoglobinuria
     Dosage: UNK
     Route: 042
     Dates: start: 201908

REACTIONS (23)
  - Type 1 diabetes mellitus [Not Recovered/Not Resolved]
  - Weight bearing difficulty [Not Recovered/Not Resolved]
  - Pain [Not Recovered/Not Resolved]
  - Arthropod bite [Not Recovered/Not Resolved]
  - Blood insulin increased [Not Recovered/Not Resolved]
  - Erythema [Recovered/Resolved]
  - Scar [Unknown]
  - Gait disturbance [Not Recovered/Not Resolved]
  - Skin laxity [Recovered/Resolved]
  - Muscle tightness [Unknown]
  - Pain in extremity [Not Recovered/Not Resolved]
  - Trigger points [Not Recovered/Not Resolved]
  - Neuralgia [Recovering/Resolving]
  - Spondylitis [Recovering/Resolving]
  - Blood iron decreased [Unknown]
  - Blood glucose abnormal [Unknown]
  - Weight decreased [Unknown]
  - Fall [Unknown]
  - Malaise [Recovered/Resolved]
  - Fatigue [Unknown]
  - Diarrhoea [Not Recovered/Not Resolved]
  - Arthralgia [Recovered/Resolved]
  - Myalgia [Not Recovered/Not Resolved]

NARRATIVE: CASE EVENT DATE: 20220101
